FAERS Safety Report 13996015 (Version 1)
Quarter: 2017Q3

REPORT INFORMATION
  Report Type: Spontaneous
  Country: US (occurrence: US)
  Receive Date: 20170921
  Receipt Date: 20170921
  Transmission Date: 20171128
  Serious: No
  Sender: FDA-Public Use
  Company Number: US-AMARIN PHARMA, INC.-2016AMR000155

PATIENT
  Age: 69 Year
  Sex: Female

DRUGS (2)
  1. SUPPLEMENTS [Concomitant]
     Active Substance: UNSPECIFIED INGREDIENT
     Indication: PRODUCT USED FOR UNKNOWN INDICATION
     Route: 065
  2. VASCEPA [Suspect]
     Active Substance: ICOSAPENT ETHYL
     Indication: BLOOD TRIGLYCERIDES INCREASED
     Route: 048
     Dates: start: 20160510, end: 20160513

REACTIONS (16)
  - Food allergy [Not Recovered/Not Resolved]
  - Headache [Recovering/Resolving]
  - Fibromyalgia [Recovering/Resolving]
  - Fatigue [Recovering/Resolving]
  - Nightmare [Recovering/Resolving]
  - Skin odour abnormal [Not Recovered/Not Resolved]
  - Alopecia [Not Recovered/Not Resolved]
  - Nausea [Recovering/Resolving]
  - Insomnia [Not Recovered/Not Resolved]
  - Musculoskeletal stiffness [Recovering/Resolving]
  - Neck pain [Recovering/Resolving]
  - Decreased appetite [Recovering/Resolving]
  - Heart rate increased [Recovering/Resolving]
  - Gingival oedema [Recovering/Resolving]
  - Panic reaction [Not Recovered/Not Resolved]
  - Asthenia [Recovering/Resolving]

NARRATIVE: CASE EVENT DATE: 201605
